FAERS Safety Report 23588825 (Version 3)
Quarter: 2024Q1

REPORT INFORMATION
  Report Type: Spontaneous
  Country: FR (occurrence: FR)
  Receive Date: 20240303
  Receipt Date: 20240322
  Transmission Date: 20240410
  Serious: Yes (Hospitalization, Other)
  Sender: FDA-Public Use
  Company Number: FR-AFSSAPS-BX2024000318

PATIENT
  Age: 4 Year
  Sex: Female
  Weight: 15 kg

DRUGS (13)
  1. PREDNISOLONE [Suspect]
     Active Substance: PREDNISOLONE
     Indication: Precursor T-lymphoblastic leukaemia acute
     Dosage: 5 MILLIGRAM(INTRAVENTRICULAIRE FLIGHT PAIR)
     Route: 018
     Dates: start: 20240116, end: 20240116
  2. CYTARABINE [Suspect]
     Active Substance: CYTARABINE
     Indication: Precursor T-lymphoblastic leukaemia acute
     Dosage: 30 MILLIGRAM
     Route: 037
     Dates: start: 20231115
  3. CYTARABINE [Suspect]
     Active Substance: CYTARABINE
     Dosage: 30 MILLIGRAM
     Route: 037
     Dates: start: 20231206
  4. CYTARABINE [Suspect]
     Active Substance: CYTARABINE
     Dosage: 30 MILLIGRAM
     Route: 037
     Dates: start: 20231229
  5. CYTARABINE [Suspect]
     Active Substance: CYTARABINE
     Dosage: 30 MILLIGRAM
     Route: 037
     Dates: start: 20240108
  6. CYTARABINE [Suspect]
     Active Substance: CYTARABINE
     Dosage: 30 MILLIGRAM
     Route: 037
     Dates: start: 20240112
  7. CYTARABINE [Suspect]
     Active Substance: CYTARABINE
     Dosage: 15 MILLIGRAM,INTRAVENTRICULAIRE FLIGHT PAIR
     Route: 018
     Dates: start: 20240116, end: 20240116
  8. METHOTREXATE (METHOTREXATE SODIUM) [Suspect]
     Active Substance: METHOTREXATE SODIUM
     Indication: Precursor T-lymphoblastic leukaemia acute
     Dosage: 12 MILLIGRAM
     Route: 037
     Dates: start: 20231115
  9. METHOTREXATE (METHOTREXATE SODIUM) [Suspect]
     Active Substance: METHOTREXATE SODIUM
     Dosage: 12 MILLIGRAM
     Route: 037
     Dates: start: 20231206
  10. METHOTREXATE (METHOTREXATE SODIUM) [Suspect]
     Active Substance: METHOTREXATE SODIUM
     Dosage: 12 MILLIGRAM
     Route: 037
     Dates: start: 20231229
  11. METHOTREXATE (METHOTREXATE SODIUM) [Suspect]
     Active Substance: METHOTREXATE SODIUM
     Dosage: 12 MILLIGRAM
     Route: 037
     Dates: start: 20240108
  12. METHOTREXATE (METHOTREXATE SODIUM) [Suspect]
     Active Substance: METHOTREXATE SODIUM
     Dosage: 12 MILLIGRAM
     Route: 037
     Dates: start: 20240112
  13. METHOTREXATE (METHOTREXATE SODIUM) [Suspect]
     Active Substance: METHOTREXATE SODIUM
     Dosage: 6 MILLIGRAM(INTRAVENTRICULARLY)
     Route: 018
     Dates: start: 20240116, end: 20240116

REACTIONS (2)
  - Encephalopathy [Recovering/Resolving]
  - Off label use [Unknown]

NARRATIVE: CASE EVENT DATE: 20240122
